FAERS Safety Report 12856728 (Version 2)
Quarter: 2016Q4

REPORT INFORMATION
  Report Type: Spontaneous
  Country: FR (occurrence: FR)
  Receive Date: 20161018
  Receipt Date: 20161114
  Transmission Date: 20170207
  Serious: Yes (Other)
  Sender: FDA-Public Use
  Company Number: PHHY2016FR141363

PATIENT
  Age: 65 Year
  Sex: Female
  Weight: 47 kg

DRUGS (1)
  1. TASIGNA [Suspect]
     Active Substance: NILOTINIB
     Indication: CHRONIC MYELOID LEUKAEMIA
     Dosage: 600 MG, QD
     Route: 048
     Dates: start: 201507, end: 201606

REACTIONS (2)
  - Arteriosclerosis [Unknown]
  - Aortic arteriosclerosis [Unknown]

NARRATIVE: CASE EVENT DATE: 20160615
